FAERS Safety Report 10167879 (Version 1)
Quarter: 2014Q2

REPORT INFORMATION
  Report Type: Spontaneous
  Country: CN (occurrence: CN)
  Receive Date: 20140512
  Receipt Date: 20140512
  Transmission Date: 20141212
  Serious: Yes (Other)
  Sender: FDA-Public Use
  Company Number: CN-PFIZER INC-2014127315

PATIENT
  Age: 29 Year
  Sex: Female

DRUGS (2)
  1. METHYLPREDNISOLONE SODIUM SUCCINATE [Suspect]
     Indication: LUPUS NEPHRITIS
     Dosage: 1 G, 1X/DAY
     Route: 041
     Dates: start: 19970908
  2. METHYLPREDNISOLONE SODIUM SUCCINATE [Suspect]
     Indication: NEPHROTIC SYNDROME

REACTIONS (2)
  - Renal failure acute [Recovering/Resolving]
  - Upper gastrointestinal haemorrhage [Recovering/Resolving]
